FAERS Safety Report 6941003-2 (Version None)
Quarter: 2010Q3

REPORT INFORMATION
  Report Type: 
  Country: None (occurrence: None)
  Receive Date: 20100825
  Receipt Date: 20100818
  Transmission Date: 20110219
  Serious: Yes (Death)
  Sender: FDA-Public Use
  Company Number: A0877511A

PATIENT
  Age: 64 Year
  Sex: Female

DRUGS (2)
  1. LAMICTAL [Suspect]
     Indication: BIPOLAR II DISORDER
     Dosage: 100MG TWICE PER DAY
     Route: 048
     Dates: start: 20100109, end: 20100429
  2. QUETIAPINE [Concomitant]
     Dosage: 200MG PER DAY
     Dates: start: 20100109, end: 20100429

REACTIONS (1)
  - COMPLETED SUICIDE [None]
